FAERS Safety Report 5059351-2 (Version None)
Quarter: 2006Q3

REPORT INFORMATION
  Report Type: 
  Country: None (occurrence: None)
  Receive Date: 20060724
  Receipt Date: 20060717
  Transmission Date: 20061208
  Serious: Yes (Death)
  Sender: FDA-Public Use
  Company Number: US-BRISTOL-MYERS SQUIBB COMPANY-13444054

PATIENT
  Age: 44 Year
  Sex: Male
  Weight: 106 kg

DRUGS (5)
  1. GLUCOPHAGE [Suspect]
     Indication: DIABETES MELLITUS
  2. LIPITOR [Concomitant]
  3. GLUCOTROL [Concomitant]
  4. TOPROL-XL [Concomitant]
  5. PRINIVIL [Concomitant]

REACTIONS (1)
  - DEATH [None]
